FAERS Safety Report 4263507-6 (Version None)
Quarter: 2004Q1

REPORT INFORMATION
  Report Type: 
  Country: None (occurrence: None)
  Receive Date: 20040105
  Receipt Date: 20031223
  Transmission Date: 20041129
  Serious: Yes (Life-Threatening, Hospitalization)
  Sender: FDA-Public Use
  Company Number: FI-BRISTOL-MYERS SQUIBB COMPANY-12463865

PATIENT
  Age: 50 Year
  Sex: Male

DRUGS (3)
  1. TREXAN (ORION) [Suspect]
     Indication: PSORIATIC ARTHROPATHY
     Route: 048
     Dates: start: 20020501
  2. SULFASALAZINE [Concomitant]
     Indication: PSORIATIC ARTHROPATHY
     Dosage: NUMBER OF DOSAGES:  ^2 + 2^
     Route: 048
     Dates: start: 20020501
  3. SORDINOL [Concomitant]

REACTIONS (20)
  - BLOOD ALKALINE PHOSPHATASE INCREASED [None]
  - BLOOD PH DECREASED [None]
  - BLOOD SODIUM DECREASED [None]
  - DRUG ERUPTION [None]
  - HAEMATOCHEZIA [None]
  - HAEMODYNAMIC INSTABILITY [None]
  - HAEMOGLOBIN ABNORMAL [None]
  - HAEMOPTYSIS [None]
  - HERPES SIMPLEX [None]
  - IMPLANT SITE INFECTION [None]
  - LABORATORY TEST ABNORMAL [None]
  - LARYNGEAL OEDEMA [None]
  - MONOCYTE COUNT INCREASED [None]
  - PANCYTOPENIA [None]
  - PNEUMONIA [None]
  - PREALBUMIN DECREASED [None]
  - SEPSIS [None]
  - STAPHYLOCOCCAL BACTERAEMIA [None]
  - STAPHYLOCOCCAL SEPSIS [None]
  - STRIDOR [None]
